FAERS Safety Report 8857655 (Version 3)
Quarter: 2013Q3

REPORT INFORMATION
  Report Type: Report from Study
  Country: US (occurrence: US)
  Receive Date: 20121024
  Receipt Date: 20130924
  Transmission Date: 20140515
  Serious: Yes (Other)
  Sender: FDA-Public Use
  Company Number: US-VERTEX PHARMACEUTICAL INC.-2012-023070

PATIENT
  Age: 59 Year
  Sex: Male
  Weight: 106.9 kg

DRUGS (13)
  1. VX-950 (TELAPREVIR) [Suspect]
     Indication: HEPATITIS C
     Dosage: 1125 MG, BID
     Route: 048
     Dates: start: 20120911, end: 20121015
  2. VX-950 (TELAPREVIR) [Suspect]
     Dosage: UNK
  3. Z-PEGYLATED INTERFERON-2A [Suspect]
     Indication: HEPATITIS C
     Dosage: 180 ?G, QW
     Route: 058
     Dates: start: 20120911, end: 20121008
  4. Z-RIBAVIRIN [Suspect]
     Indication: HEPATITIS C
     Dosage: 600 MG, QD
     Route: 048
     Dates: start: 20120911, end: 20120924
  5. Z-RIBAVIRIN [Suspect]
     Dosage: 1000 MG, QD
     Route: 048
     Dates: start: 20120925, end: 20120928
  6. Z-RIBAVIRIN [Suspect]
     Dosage: 1200 MG, QD
     Route: 048
     Dates: start: 20120929, end: 20121015
  7. LOPROX [Concomitant]
     Indication: RASH
     Dosage: 1 UNK, BID
     Dates: start: 20120917, end: 20120920
  8. OXYCODONE [Concomitant]
     Indication: PAIN
     Dosage: 15 MG, QID
     Dates: start: 20120824
  9. TACROLIMUS [Concomitant]
     Indication: IMMUNOSUPPRESSION
     Dosage: 0.5 MG, UNK
     Dates: start: 20120903
  10. HYDROXYZINE [Concomitant]
     Indication: PRURITUS
     Dosage: 10 MG, UNK
     Dates: start: 20120914, end: 20120920
  11. HYDROCORTISONE W/LIDOCAINE [Concomitant]
     Indication: ANAL PRURITUS
     Dosage: UNK
     Dates: start: 20120915, end: 20120920
  12. TRIAMCINOLONE [Concomitant]
     Indication: RASH
     Dosage: 0.190 UNK, UNK
     Dates: start: 20120920, end: 20120920
  13. DOXEPIN [Concomitant]
     Indication: RASH
     Dosage: 10 MG, UNK
     Dates: start: 20120920, end: 20120920

REACTIONS (2)
  - Muscular weakness [Not Recovered/Not Resolved]
  - Rhabdomyolysis [Not Recovered/Not Resolved]
